FAERS Safety Report 5222405-1 (Version None)
Quarter: 2007Q1

REPORT INFORMATION
  Report Type: 
  Country: None (occurrence: None)
  Receive Date: 20070129
  Receipt Date: 20060627
  Transmission Date: 20070707
  Serious: Yes (Life-Threatening)
  Sender: FDA-Public Use
  Company Number: US-BRISTOL-MYERS SQUIBB COMPANY-13425574

PATIENT
  Sex: Male

DRUGS (2)
  1. TRAZODONE HCL [Suspect]
  2. ZYPREXIN [Suspect]

REACTIONS (1)
  - SUICIDE ATTEMPT [None]
